FAERS Safety Report 19463378 (Version 2)
Quarter: 2021Q2

REPORT INFORMATION
  Report Type: Spontaneous
  Country: US (occurrence: US)
  Receive Date: 20210625
  Receipt Date: 20210628
  Transmission Date: 20210717
  Serious: Yes (Other)
  Sender: FDA-Public Use
  Company Number: US-ALLERGAN-2123923US

PATIENT
  Sex: Female

DRUGS (3)
  1. LEVONORGESTREL UNK [Suspect]
     Active Substance: LEVONORGESTREL
     Indication: HAEMOPTYSIS
     Dosage: 52 MG, SINGLE
     Route: 015
  2. DABIGATRAN [Concomitant]
     Active Substance: DABIGATRAN
     Indication: EMBOLISM VENOUS
  3. TRANEXAMIC ACID. [Concomitant]
     Active Substance: TRANEXAMIC ACID
     Indication: HAEMOPTYSIS

REACTIONS (3)
  - Off label use [Unknown]
  - Heavy menstrual bleeding [Unknown]
  - Drug ineffective for unapproved indication [Unknown]
